FAERS Safety Report 19212531 (Version 1)
Quarter: 2021Q2

REPORT INFORMATION
  Report Type: Spontaneous
  Country: US (occurrence: US)
  Receive Date: 20210504
  Receipt Date: 20210504
  Transmission Date: 20210717
  Serious: Yes (Other)
  Sender: FDA-Public Use
  Company Number: None

PATIENT
  Age: 70 Year
  Sex: Female
  Weight: 72 kg

DRUGS (19)
  1. NEBULIZER [Concomitant]
     Active Substance: DEVICE
  2. ELIQUIS [Concomitant]
     Active Substance: APIXABAN
  3. ALBUTEROL SOLUTION [Concomitant]
  4. ASPIRIN 325MG [Concomitant]
     Active Substance: ASPIRIN
  5. MAGNESIUM ASPOROTATE [Concomitant]
  6. MULTIVITAMIN W/IRON [Concomitant]
  7. TYLENOL [Concomitant]
     Active Substance: ACETAMINOPHEN
  8. LORAZEPAM TABS 1 MG [Suspect]
     Active Substance: LORAZEPAM
     Indication: ANXIETY
     Dosage: ?          QUANTITY:1 TABLET(S);?
     Route: 048
     Dates: start: 20210323, end: 20210401
  9. ASMANEX [Concomitant]
     Active Substance: MOMETASONE FUROATE
  10. BETAXOLOL. [Concomitant]
     Active Substance: BETAXOLOL
  11. XANAX [Concomitant]
     Active Substance: ALPRAZOLAM
  12. ECHINACEA [Concomitant]
     Active Substance: ECHINACEA, UNSPECIFIED
  13. FORADIL [Concomitant]
     Active Substance: FORMOTEROL FUMARATE
  14. PLAVIX [Concomitant]
     Active Substance: CLOPIDOGREL BISULFATE
  15. THEO?DUR [Concomitant]
     Active Substance: THEOPHYLLINE ANHYDROUS
  16. BUDESONIDE SOLUTION [Concomitant]
     Active Substance: BUDESONIDE
  17. SPIRIVA [Concomitant]
     Active Substance: TIOTROPIUM BROMIDE MONOHYDRATE
  18. OXYGEN. [Concomitant]
     Active Substance: OXYGEN
  19. ZINC EASE LOZENGES [Concomitant]

REACTIONS (5)
  - Dyspnoea [None]
  - Toxicity to various agents [None]
  - Drug abuser [None]
  - Sedation [None]
  - Drug withdrawal syndrome [None]

NARRATIVE: CASE EVENT DATE: 20210323
